FAERS Safety Report 6444309-9 (Version None)
Quarter: 2009Q4

REPORT INFORMATION
  Report Type: 
  Country: None (occurrence: None)
  Receive Date: 20091118
  Receipt Date: 20091105
  Transmission Date: 20100525
  Serious: Yes (Hospitalization, Other)
  Sender: FDA-Public Use
  Company Number: PHHY2009AR37908

PATIENT
  Age: 54 Year
  Sex: Male

DRUGS (3)
  1. DIOVAN [Suspect]
     Indication: HYPERTENSION
     Dosage: 1 DF (160 MG) DAILY
     Dates: start: 20070823
  2. CLONAZEPAM [Concomitant]
     Dosage: 0.5 MG / DAY
  3. CHEMOTHERAPEUTICS NOS [Concomitant]

REACTIONS (3)
  - COLON NEOPLASM [None]
  - RECTAL HAEMORRHAGE [None]
  - TUMOUR EXCISION [None]
